FAERS Safety Report 14302740 (Version 2)
Quarter: 2017Q4

REPORT INFORMATION
  Report Type: Spontaneous
  Country: JP (occurrence: JP)
  Receive Date: 20171219
  Receipt Date: 20171231
  Transmission Date: 20180321
  Serious: Yes (Other)
  Sender: FDA-Public Use
  Company Number: JP-TEVA-2017-JP-833259

PATIENT
  Age: 7 Decade
  Sex: Female

DRUGS (3)
  1. PREDNISOLONE. [Suspect]
     Active Substance: PREDNISOLONE
     Indication: SYSTEMIC LUPUS ERYTHEMATOSUS
     Dosage: 60 MILLIGRAM DAILY;
     Route: 048
  2. PREDNISOLONE. [Suspect]
     Active Substance: PREDNISOLONE
     Indication: DERMATOMYOSITIS
     Dosage: 50 MILLIGRAM DAILY;
     Route: 048
  3. METHYLPREDNISOLONE. [Concomitant]
     Active Substance: METHYLPREDNISOLONE
     Indication: SYSTEMIC LUPUS ERYTHEMATOSUS
     Dosage: 500 MILLIGRAM DAILY;
     Route: 065

REACTIONS (2)
  - Diabetic nephropathy [Unknown]
  - Diabetes mellitus [Unknown]
